FAERS Safety Report 20705575 (Version 1)
Quarter: 2022Q2

REPORT INFORMATION
  Report Type: Spontaneous
  Country: US (occurrence: US)
  Receive Date: 20220413
  Receipt Date: 20220413
  Transmission Date: 20220720
  Serious: No
  Sender: FDA-Public Use
  Company Number: US-PFIZER INC-2021555584

PATIENT
  Age: 65 Year
  Sex: Female

DRUGS (1)
  1. IBRANCE [Suspect]
     Active Substance: PALBOCICLIB
     Dosage: 75 MG, CYCLIC (1X/DAY, MONDAY THROUGH FRIDAY TAKEN WITH OR WITHOUT FOOD , AND SATURDAY AND SUNDAY OF
     Route: 048

REACTIONS (3)
  - Product use issue [Unknown]
  - COVID-19 [Unknown]
  - Neoplasm progression [Unknown]
